FAERS Safety Report 7952939-8 (Version None)
Quarter: 2011Q4

REPORT INFORMATION
  Report Type: 
  Country: None (occurrence: None)
  Receive Date: 20111201
  Receipt Date: 20111117
  Transmission Date: 20120403
  Serious: No
  Sender: FDA-Public Use
  Company Number: US-B.I. PHARMACEUTICALS,INC./RIDGEFIELD-2011-BP-26427BP

PATIENT
  Age: 82 Year
  Sex: Female

DRUGS (4)
  1. OMEPRAZOLE [Concomitant]
     Indication: HYPERSENSITIVITY
     Route: 048
  2. PRADAXA [Suspect]
     Indication: ATRIAL FIBRILLATION
     Dosage: 150 MG
     Route: 048
     Dates: start: 20110501
  3. AZOR [Concomitant]
     Indication: HYPERTENSION
     Route: 048
     Dates: start: 20110501
  4. MULTAQ [Concomitant]
     Indication: ATRIAL FIBRILLATION
     Route: 048
     Dates: start: 20110501

REACTIONS (2)
  - BLOOD URINE PRESENT [None]
  - ANAL PRURITUS [None]
